FAERS Safety Report 7774230-5 (Version None)
Quarter: 2011Q3

REPORT INFORMATION
  Report Type: 
  Country: None (occurrence: None)
  Receive Date: 20110923
  Receipt Date: 20100916
  Transmission Date: 20111222
  Serious: Yes (Death)
  Sender: FDA-Public Use
  Company Number: JP-ASTELLAS-2011JP006630

PATIENT
  Age: 67 Year
  Sex: Male
  Weight: 60 kg

DRUGS (5)
  1. DEXAMETHASONE [Concomitant]
     Dosage: 20 MG, UNKNOWN/D
     Route: 065
  2. FUNGUARD [Suspect]
     Route: 065
  3. BORTEZOMIB [Concomitant]
     Dosage: UNK
     Route: 065
     Dates: start: 20070801
  4. BORTEZOMIB [Concomitant]
     Dosage: 1.3 MG/M2, UNKNOWN/D
     Route: 065
  5. DEXAMETHASONE [Concomitant]
     Route: 065

REACTIONS (1)
  - ZYGOMYCOSIS [None]
